FAERS Safety Report 12081282 (Version 1)
Quarter: 2016Q1

REPORT INFORMATION
  Report Type: Spontaneous
  Country: ID (occurrence: ID)
  Receive Date: 20160216
  Receipt Date: 20160216
  Transmission Date: 20160526
  Serious: Yes (Death, Hospitalization)
  Sender: FDA-Public Use
  Company Number: ID-EISAI MEDICAL RESEARCH-EC-2016-014422

PATIENT
  Sex: Female

DRUGS (1)
  1. HALAVEN [Suspect]
     Active Substance: ERIBULIN MESYLATE
     Indication: BREAST CANCER METASTATIC
     Dosage: 2 VIALS (UNKNOWN)
     Route: 041
     Dates: start: 2016, end: 2016

REACTIONS (4)
  - Fatigue [Fatal]
  - Diarrhoea [Fatal]
  - Abdominal distension [Fatal]
  - Anaemia [Fatal]

NARRATIVE: CASE EVENT DATE: 2016
